FAERS Safety Report 25414132 (Version 1)
Quarter: 2025Q2

REPORT INFORMATION
  Report Type: Spontaneous
  Country: GB (occurrence: GB)
  Receive Date: 20250609
  Receipt Date: 20250609
  Transmission Date: 20250716
  Serious: Yes (Other)
  Sender: MYLAN
  Company Number: GB-MHRA-TPP20408539C1314945YC1748857263573

PATIENT
  Age: 84 Year
  Sex: Male
  Weight: 97 kg

DRUGS (40)
  1. EPLERENONE [Suspect]
     Active Substance: EPLERENONE
     Indication: Ill-defined disorder
     Dosage: 25 MILLIGRAM, QD
     Dates: start: 20250224, end: 20250320
  2. EPLERENONE [Suspect]
     Active Substance: EPLERENONE
     Dosage: 25 MILLIGRAM, QD
     Route: 048
     Dates: start: 20250224, end: 20250320
  3. EPLERENONE [Suspect]
     Active Substance: EPLERENONE
     Dosage: 25 MILLIGRAM, QD
     Route: 048
     Dates: start: 20250224, end: 20250320
  4. EPLERENONE [Suspect]
     Active Substance: EPLERENONE
     Dosage: 25 MILLIGRAM, QD
     Dates: start: 20250224, end: 20250320
  5. DAPAGLIFLOZIN [Concomitant]
     Active Substance: DAPAGLIFLOZIN
     Indication: Ill-defined disorder
     Dosage: 1 DOSAGE FORM, QD (SUPPLIED BY HFN TEAM  DO NOT ISSUE)
     Dates: start: 20250507
  6. DAPAGLIFLOZIN [Concomitant]
     Active Substance: DAPAGLIFLOZIN
     Dosage: 1 DOSAGE FORM, QD (SUPPLIED BY HFN TEAM  DO NOT ISSUE)
     Route: 065
     Dates: start: 20250507
  7. DAPAGLIFLOZIN [Concomitant]
     Active Substance: DAPAGLIFLOZIN
     Dosage: 1 DOSAGE FORM, QD (SUPPLIED BY HFN TEAM  DO NOT ISSUE)
     Route: 065
     Dates: start: 20250507
  8. DAPAGLIFLOZIN [Concomitant]
     Active Substance: DAPAGLIFLOZIN
     Dosage: 1 DOSAGE FORM, QD (SUPPLIED BY HFN TEAM  DO NOT ISSUE)
     Dates: start: 20250507
  9. BECLOMETHASONE DIPROPIONATE [Concomitant]
     Active Substance: BECLOMETHASONE DIPROPIONATE
     Indication: Ill-defined disorder
     Dosage: 2 DOSAGE FORM, BID
     Dates: start: 20240104
  10. BECLOMETHASONE DIPROPIONATE [Concomitant]
     Active Substance: BECLOMETHASONE DIPROPIONATE
     Dosage: 2 DOSAGE FORM, BID
     Route: 055
     Dates: start: 20240104
  11. BECLOMETHASONE DIPROPIONATE [Concomitant]
     Active Substance: BECLOMETHASONE DIPROPIONATE
     Dosage: 2 DOSAGE FORM, BID
     Route: 055
     Dates: start: 20240104
  12. BECLOMETHASONE DIPROPIONATE [Concomitant]
     Active Substance: BECLOMETHASONE DIPROPIONATE
     Dosage: 2 DOSAGE FORM, BID
     Dates: start: 20240104
  13. EDOXABAN [Concomitant]
     Active Substance: EDOXABAN
     Indication: Ill-defined disorder
     Dosage: 1 DOSAGE FORM, QD
     Dates: start: 20240104
  14. EDOXABAN [Concomitant]
     Active Substance: EDOXABAN
     Dosage: 1 DOSAGE FORM, QD
     Route: 048
     Dates: start: 20240104
  15. EDOXABAN [Concomitant]
     Active Substance: EDOXABAN
     Dosage: 1 DOSAGE FORM, QD
     Route: 048
     Dates: start: 20240104
  16. EDOXABAN [Concomitant]
     Active Substance: EDOXABAN
     Dosage: 1 DOSAGE FORM, QD
     Dates: start: 20240104
  17. LANSOPRAZOLE [Concomitant]
     Active Substance: LANSOPRAZOLE
     Indication: Ill-defined disorder
     Dosage: 1 DOSAGE FORM, AM
     Dates: start: 20240104
  18. LANSOPRAZOLE [Concomitant]
     Active Substance: LANSOPRAZOLE
     Dosage: 1 DOSAGE FORM, AM
     Route: 048
     Dates: start: 20240104
  19. LANSOPRAZOLE [Concomitant]
     Active Substance: LANSOPRAZOLE
     Dosage: 1 DOSAGE FORM, AM
     Route: 048
     Dates: start: 20240104
  20. LANSOPRAZOLE [Concomitant]
     Active Substance: LANSOPRAZOLE
     Dosage: 1 DOSAGE FORM, AM
     Dates: start: 20240104
  21. LOSARTAN [Concomitant]
     Active Substance: LOSARTAN
     Indication: Ill-defined disorder
     Dosage: 1 DOSAGE FORM, QD
     Dates: start: 20240104
  22. LOSARTAN [Concomitant]
     Active Substance: LOSARTAN
     Dosage: 1 DOSAGE FORM, QD
     Route: 048
     Dates: start: 20240104
  23. LOSARTAN [Concomitant]
     Active Substance: LOSARTAN
     Dosage: 1 DOSAGE FORM, QD
     Route: 048
     Dates: start: 20240104
  24. LOSARTAN [Concomitant]
     Active Substance: LOSARTAN
     Dosage: 1 DOSAGE FORM, QD
     Dates: start: 20240104
  25. MOMETASONE [Concomitant]
     Active Substance: MOMETASONE
     Indication: Ill-defined disorder
  26. MOMETASONE [Concomitant]
     Active Substance: MOMETASONE
     Route: 065
  27. MOMETASONE [Concomitant]
     Active Substance: MOMETASONE
     Route: 065
  28. MOMETASONE [Concomitant]
     Active Substance: MOMETASONE
  29. ALBUTEROL [Concomitant]
     Active Substance: ALBUTEROL
     Indication: Ill-defined disorder
  30. ALBUTEROL [Concomitant]
     Active Substance: ALBUTEROL
     Route: 055
  31. ALBUTEROL [Concomitant]
     Active Substance: ALBUTEROL
     Route: 055
  32. ALBUTEROL [Concomitant]
     Active Substance: ALBUTEROL
  33. TESTOSTERONE [Concomitant]
     Active Substance: TESTOSTERONE
     Indication: Ill-defined disorder
     Dosage: 60.75 MILLIGRAM, QD (PUMP)
     Dates: start: 20240104
  34. TESTOSTERONE [Concomitant]
     Active Substance: TESTOSTERONE
     Dosage: 60.75 MILLIGRAM, QD (PUMP)
     Route: 065
     Dates: start: 20240104
  35. TESTOSTERONE [Concomitant]
     Active Substance: TESTOSTERONE
     Dosage: 60.75 MILLIGRAM, QD (PUMP)
     Route: 065
     Dates: start: 20240104
  36. TESTOSTERONE [Concomitant]
     Active Substance: TESTOSTERONE
     Dosage: 60.75 MILLIGRAM, QD (PUMP)
     Dates: start: 20240104
  37. ROSUVASTATIN [Concomitant]
     Active Substance: ROSUVASTATIN
     Indication: Blood cholesterol increased
     Dosage: 1 DOSAGE FORM, PM (EACH NIGHT)
     Dates: start: 20240214
  38. ROSUVASTATIN [Concomitant]
     Active Substance: ROSUVASTATIN
     Dosage: 1 DOSAGE FORM, PM (EACH NIGHT)
     Route: 048
     Dates: start: 20240214
  39. ROSUVASTATIN [Concomitant]
     Active Substance: ROSUVASTATIN
     Dosage: 1 DOSAGE FORM, PM (EACH NIGHT)
     Route: 048
     Dates: start: 20240214
  40. ROSUVASTATIN [Concomitant]
     Active Substance: ROSUVASTATIN
     Dosage: 1 DOSAGE FORM, PM (EACH NIGHT)
     Dates: start: 20240214

REACTIONS (1)
  - Retinal haemorrhage [Recovering/Resolving]

NARRATIVE: CASE EVENT DATE: 20250602
